FAERS Safety Report 9850920 (Version 3)
Quarter: 2014Q1

REPORT INFORMATION
  Report Type: Spontaneous
  Country: DE (occurrence: DE)
  Receive Date: 20140128
  Receipt Date: 20140217
  Transmission Date: 20141002
  Serious: Yes (Hospitalization, Other)
  Sender: FDA-Public Use
  Company Number: DE-PFIZER INC-2013332369

PATIENT
  Age: 59 Year
  Sex: Male
  Weight: 77 kg

DRUGS (7)
  1. INLYTA [Suspect]
     Indication: METASTATIC RENAL CELL CARCINOMA
     Dosage: 5 MG, 2X/DAY
     Route: 048
     Dates: start: 20130801, end: 20131001
  2. INLYTA [Suspect]
     Dosage: 6 MG, DAILY
     Route: 048
     Dates: start: 20131002, end: 20131104
  3. INLYTA [Suspect]
     Dosage: 10 MG, DAILY
     Route: 048
     Dates: start: 20131105, end: 20131125
  4. INLYTA [Suspect]
     Dosage: 6 MG, DAILY
     Route: 048
     Dates: start: 20131126, end: 20131213
  5. INLYTA [Suspect]
     Dosage: 8 MG, DAILY
     Route: 048
     Dates: start: 20131214, end: 20140102
  6. PANTOZOL [Concomitant]
     Indication: PROPHYLAXIS
     Dosage: 40 MG, UNK
     Route: 048
     Dates: start: 201311
  7. SKID [Concomitant]
     Indication: DERMATITIS
     Dosage: 0-1-0
     Route: 048
     Dates: start: 201311

REACTIONS (27)
  - Blood creatinine increased [Recovering/Resolving]
  - General physical health deterioration [Unknown]
  - Haemorrhage [Unknown]
  - Hypertensive crisis [Unknown]
  - Muscle spasms [Recovered/Resolved]
  - Headache [Recovered/Resolved]
  - Rash [Unknown]
  - Dysphonia [Recovered/Resolved]
  - Paraesthesia [Recovered/Resolved]
  - Peripheral coldness [Recovered/Resolved]
  - Hyperkeratosis [Recovered/Resolved]
  - Arthropathy [Unknown]
  - Musculoskeletal stiffness [Unknown]
  - Gait disturbance [Recovered/Resolved]
  - Sleep disorder [Recovered/Resolved]
  - Fatigue [Recovered/Resolved]
  - Sensory loss [Recovered/Resolved]
  - Hyperkeratosis [Recovered/Resolved]
  - Abdominal pain upper [Recovered/Resolved]
  - Tremor [Recovered/Resolved]
  - Muscular weakness [Recovered/Resolved]
  - Hypothyroidism [Unknown]
  - Lung disorder [Recovering/Resolving]
  - Blood pH decreased [Recovering/Resolving]
  - Gamma-glutamyltransferase increased [Unknown]
  - Vocal cord paresis [Unknown]
  - Dermatitis [Unknown]
